FAERS Safety Report 4943140-0 (Version None)
Quarter: 2006Q1

REPORT INFORMATION
  Report Type: 
  Country: None (occurrence: None)
  Receive Date: 20060314
  Receipt Date: 20051104
  Transmission Date: 20060701
  Serious: Yes (Hospitalization)
  Sender: FDA-Public Use
  Company Number: US-MERCK-0511USA00828

PATIENT
  Age: 50 Year
  Sex: Female
  Weight: 84 kg

DRUGS (3)
  1. VIOXX [Suspect]
     Indication: ARTHRALGIA
     Route: 048
     Dates: start: 20030522, end: 20040109
  2. VIOXX [Suspect]
     Indication: INFLAMMATION
     Route: 048
     Dates: start: 20030522, end: 20040109
  3. ACCUPRIL [Concomitant]
     Indication: BLOOD PRESSURE
     Route: 065

REACTIONS (5)
  - CONDITION AGGRAVATED [None]
  - COSTOCHONDRITIS [None]
  - DUODENITIS [None]
  - HYPERTENSION [None]
  - MYOCARDIAL INFARCTION [None]
